FAERS Safety Report 7427360-1 (Version None)
Quarter: 2011Q2

REPORT INFORMATION
  Report Type: 
  Country: None (occurrence: None)
  Receive Date: 20110420
  Receipt Date: 20110411
  Transmission Date: 20111010
  Serious: Yes (Hospitalization)
  Sender: FDA-Public Use
  Company Number: KR-ELI_LILLY_AND_COMPANY-KR201104002513

PATIENT
  Sex: Female

DRUGS (2)
  1. HUMULIN N [Suspect]
     Dosage: UNK
  2. ANTIHYPERTENSIVES [Concomitant]

REACTIONS (2)
  - URTICARIA [None]
  - PRURITUS GENERALISED [None]
